FAERS Safety Report 6497680-6 (Version None)
Quarter: 2009Q4

REPORT INFORMATION
  Report Type: 
  Country: None (occurrence: None)
  Receive Date: 20091211
  Receipt Date: 20091204
  Transmission Date: 20100525
  Serious: Yes (Hospitalization)
  Sender: FDA-Public Use
  Company Number: SPV1-2009-02367

PATIENT
  Age: 67 Year
  Sex: Female

DRUGS (11)
  1. FOSRENOL [Suspect]
     Indication: RENAL FAILURE CHRONIC
     Dosage: UNK, UNK, ORAL UNK, UNK, ORAL
     Route: 048
     Dates: start: 20091028
  2. FOSRENOL [Suspect]
     Indication: RENAL FAILURE CHRONIC
     Dosage: UNK, UNK, ORAL UNK, UNK, ORAL
     Route: 048
     Dates: start: 20091104
  3. AMLODIPINE BESYLATE [Concomitant]
  4. DIOVAN [Concomitant]
  5. PLAVIX [Concomitant]
  6. CARVEDILOL [Concomitant]
  7. ARGAMATE (CALCIUM POLYSTYRENE SULFONATE) [Concomitant]
  8. CALTAN (CALCIUM CARBONATE) [Concomitant]
  9. MARZULENE-S (AZULENE, LEVOGLUTAMIDE, SODIUM GUALENATE) [Concomitant]
  10. EPOGEN [Suspect]
  11. MERCAZOLE (THIAMAZOLE) [Concomitant]

REACTIONS (5)
  - CONVULSION [None]
  - HAEMODIALYSIS [None]
  - HEADACHE [None]
  - LOSS OF CONSCIOUSNESS [None]
  - MALAISE [None]
